FAERS Safety Report 7945649-4 (Version None)
Quarter: 2011Q4

REPORT INFORMATION
  Report Type: 
  Country: None (occurrence: None)
  Receive Date: 20111129
  Receipt Date: 20111123
  Transmission Date: 20120403
  Serious: Yes (Hospitalization)
  Sender: FDA-Public Use
  Company Number: FR-ROCHE-1005884

PATIENT
  Age: 69 Year
  Sex: Female

DRUGS (8)
  1. VINCRISTINE [Suspect]
     Indication: T-CELL LYMPHOMA
     Dates: start: 20110706
  2. DOXORUBICIN HCL [Suspect]
     Indication: T-CELL LYMPHOMA
     Route: 042
     Dates: start: 20110706, end: 20110706
  3. MABTHERA [Suspect]
     Indication: T-CELL LYMPHOMA
     Route: 042
     Dates: start: 20110706, end: 20110706
  4. CYCLOPHOSPHAMIDE [Suspect]
     Indication: PRODUCT USED FOR UNKNOWN INDICATION
     Route: 042
     Dates: start: 20110706, end: 20110706
  5. METHOTREXATE [Suspect]
     Indication: T-CELL LYMPHOMA
     Route: 037
     Dates: start: 20110706, end: 20110706
  6. HYDROCORTISONE [Suspect]
     Indication: T-CELL LYMPHOMA
     Route: 042
     Dates: start: 20110706, end: 20110706
  7. SOLU-MEDROL [Suspect]
     Indication: T-CELL LYMPHOMA
     Route: 042
     Dates: start: 20110706, end: 20110706
  8. PREDNISONE [Suspect]
     Indication: T-CELL LYMPHOMA
     Route: 048
     Dates: start: 20100707, end: 20100710

REACTIONS (1)
  - CARDIOMYOPATHY [None]
